FAERS Safety Report 12743529 (Version 1)
Quarter: 2016Q3

REPORT INFORMATION
  Report Type: Spontaneous
  Country: US (occurrence: US)
  Receive Date: 20160914
  Receipt Date: 20160914
  Transmission Date: 20161109
  Serious: No
  Sender: FDA-Public Use
  Company Number: None

PATIENT
  Age: 53 Year
  Sex: Female
  Weight: 97.52 kg

DRUGS (9)
  1. ZOLOFT [Concomitant]
     Active Substance: SERTRALINE HYDROCHLORIDE
  2. ASPIRIN. [Concomitant]
     Active Substance: ASPIRIN
  3. RISPERDAL [Concomitant]
     Active Substance: RISPERIDONE
  4. ANTI DIREAHA MED. [Concomitant]
  5. STOOL SOFTNER W/LAXATIVE [Concomitant]
  6. TRAZODONE [Suspect]
     Active Substance: TRAZODONE HYDROCHLORIDE
     Indication: SLEEP DISORDER
     Route: 048
     Dates: start: 20160503, end: 20160509
  7. BUSPAR [Concomitant]
     Active Substance: BUSPIRONE HYDROCHLORIDE
  8. NEURONTIN [Concomitant]
     Active Substance: GABAPENTIN
  9. VISTARIAL [Concomitant]

REACTIONS (1)
  - Irritability [None]

NARRATIVE: CASE EVENT DATE: 20160506
